FAERS Safety Report 4756690-7 (Version None)
Quarter: 2005Q3

REPORT INFORMATION
  Report Type: 
  Country: None (occurrence: None)
  Receive Date: 20050830
  Receipt Date: 20050414
  Transmission Date: 20060218
  Serious: Yes (Other)
  Sender: FDA-Public Use
  Company Number: US-MERCK-0504USA02903

PATIENT
  Age: 62 Year
  Sex: Male
  Weight: 77 kg

DRUGS (4)
  1. VIOXX [Suspect]
     Indication: ARTHRITIS
     Route: 048
     Dates: start: 20030101, end: 20030625
  2. ASPIRIN [Concomitant]
     Indication: OSTEOARTHRITIS
     Route: 065
     Dates: start: 19950101, end: 20030101
  3. ASPIRIN [Concomitant]
     Indication: RHEUMATOID ARTHRITIS
     Route: 065
     Dates: start: 19950101, end: 20030101
  4. ELAVIL [Concomitant]
     Indication: DEPRESSION
     Route: 048

REACTIONS (9)
  - BLOOD CHOLESTEROL INCREASED [None]
  - CHEST PAIN [None]
  - DISCOMFORT [None]
  - DYSPNOEA [None]
  - HEART RATE IRREGULAR [None]
  - HYPERTENSION [None]
  - MYOCARDIAL INFARCTION [None]
  - NERVOUSNESS [None]
  - OEDEMA PERIPHERAL [None]
